FAERS Safety Report 21750366 (Version 2)
Quarter: 2023Q1

REPORT INFORMATION
  Report Type: Spontaneous
  Country: DE (occurrence: DE)
  Receive Date: 20221219
  Receipt Date: 20230131
  Transmission Date: 20230418
  Serious: Yes (Other)
  Sender: FDA-Public Use
  Company Number: DE-DSJP-DSE-2022-145063

PATIENT
  Age: 70 Year
  Sex: Female
  Weight: 73 kg

DRUGS (12)
  1. ENHERTU [Suspect]
     Active Substance: FAM-TRASTUZUMAB DERUXTECAN-NXKI
     Indication: Breast cancer metastatic
     Dosage: 5.4 MG/KG, CYCLIC
     Route: 042
     Dates: start: 20220405, end: 20220405
  2. ENHERTU [Suspect]
     Active Substance: FAM-TRASTUZUMAB DERUXTECAN-NXKI
     Dosage: UNK, CYCLIC
     Route: 042
     Dates: start: 20220426, end: 20220426
  3. ENHERTU [Suspect]
     Active Substance: FAM-TRASTUZUMAB DERUXTECAN-NXKI
     Dosage: UNK, CYCLIC
     Route: 042
     Dates: start: 20220517, end: 20220517
  4. ENHERTU [Suspect]
     Active Substance: FAM-TRASTUZUMAB DERUXTECAN-NXKI
     Dosage: UNK, CYCLIC
     Route: 042
     Dates: start: 20220607, end: 20220607
  5. ENHERTU [Suspect]
     Active Substance: FAM-TRASTUZUMAB DERUXTECAN-NXKI
     Dosage: UNK, CYCLIC
     Route: 042
     Dates: start: 20220628, end: 20220628
  6. ENHERTU [Suspect]
     Active Substance: FAM-TRASTUZUMAB DERUXTECAN-NXKI
     Dosage: UNK, CYCLIC
     Route: 042
     Dates: start: 20220719, end: 20220719
  7. ENHERTU [Suspect]
     Active Substance: FAM-TRASTUZUMAB DERUXTECAN-NXKI
     Dosage: UNK, CYCLIC
     Route: 042
     Dates: start: 20220628, end: 20220628
  8. ENHERTU [Suspect]
     Active Substance: FAM-TRASTUZUMAB DERUXTECAN-NXKI
     Dosage: UNK, CYCLIC
     Route: 042
     Dates: start: 20220809, end: 20220809
  9. ENHERTU [Suspect]
     Active Substance: FAM-TRASTUZUMAB DERUXTECAN-NXKI
     Dosage: UNK, CYCLIC
     Route: 042
     Dates: start: 20220830, end: 20220830
  10. ENHERTU [Suspect]
     Active Substance: FAM-TRASTUZUMAB DERUXTECAN-NXKI
     Dosage: UNK, CYCLIC
     Route: 042
     Dates: start: 20220920, end: 20220920
  11. ENHERTU [Suspect]
     Active Substance: FAM-TRASTUZUMAB DERUXTECAN-NXKI
     Dosage: UNK, CYCLIC
     Route: 042
     Dates: start: 20221011, end: 20221011
  12. ENHERTU [Suspect]
     Active Substance: FAM-TRASTUZUMAB DERUXTECAN-NXKI
     Dosage: UNK, CYCLIC
     Route: 042
     Dates: start: 20221102

REACTIONS (1)
  - Ascites [Recovering/Resolving]

NARRATIVE: CASE EVENT DATE: 20220901
